FAERS Safety Report 20594405 (Version 2)
Quarter: 2022Q3

REPORT INFORMATION
  Report Type: Report from Study
  Country: US (occurrence: US)
  Receive Date: 20220315
  Receipt Date: 20220907
  Transmission Date: 20221027
  Serious: Yes (Other)
  Sender: FDA-Public Use
  Company Number: US-GILEAD-2022-0573021

PATIENT
  Age: 56 Year
  Sex: Female

DRUGS (33)
  1. AZTREONAM LYSINE [Suspect]
     Active Substance: AZTREONAM LYSINE
     Indication: Cystic fibrosis lung
     Dosage: 75 MG, TID, 28/28
     Route: 055
     Dates: start: 20190221
  2. AZTREONAM LYSINE [Suspect]
     Active Substance: AZTREONAM LYSINE
     Dosage: 75 MG, TID FOR 28 DAYS ON AND 28 DAYS OFF
     Route: 055
     Dates: start: 202111
  3. ZYRTEC [Concomitant]
     Active Substance: CETIRIZINE HYDROCHLORIDE
  4. DIFLUCAN [Concomitant]
     Active Substance: FLUCONAZOLE
     Dosage: 100 MG TABLET
     Dates: start: 20211112
  5. PREDNISONE [Concomitant]
     Active Substance: PREDNISONE
     Dosage: 10 MG TABLET
     Dates: start: 20211112
  6. FLONASE ALLERGY RELIEF [Concomitant]
     Active Substance: FLUTICASONE PROPIONATE
  7. TRESIBA [Concomitant]
     Active Substance: INSULIN DEGLUDEC
     Dosage: 100/ML VIAL
     Dates: start: 20211112
  8. NEXIUM I.V. [Concomitant]
     Active Substance: ESOMEPRAZOLE SODIUM
  9. KLOR-CON [Concomitant]
     Active Substance: POTASSIUM CHLORIDE
     Dosage: M20 20 MEQ TAB PRT SR
     Dates: start: 20211112
  10. BYSTOLIC [Concomitant]
     Active Substance: NEBIVOLOL HYDROCHLORIDE
     Dosage: 10 MG TABLET
     Dates: start: 20211112
  11. STIOLTO RESPIMAT [Concomitant]
     Active Substance: OLODATEROL HYDROCHLORIDE\TIOTROPIUM BROMIDE MONOHYDRATE
  12. NYSTATIN [Concomitant]
     Active Substance: NYSTATIN
     Dosage: 100000/G POWDER
     Dates: start: 20211112
  13. CYCLOBENZAPRINE HYDROCHLORIDE [Concomitant]
     Active Substance: CYCLOBENZAPRINE HYDROCHLORIDE
  14. BROVANA [Concomitant]
     Active Substance: ARFORMOTEROL TARTRATE
     Dosage: 15MCG/2ML VIAL-NEB
     Dates: start: 20211112
  15. COLACE [Concomitant]
     Active Substance: DOCUSATE SODIUM
     Dosage: 100MG CAPSULES
     Dates: start: 20211112
  16. EFFEXOR [Concomitant]
     Active Substance: VENLAFAXINE HYDROCHLORIDE
     Dosage: XR 150 MG CAP.SR 24H
     Dates: start: 20190220
  17. CREON [Concomitant]
     Active Substance: PANCRELIPASE AMYLASE\PANCRELIPASE LIPASE\PANCRELIPASE PROTEASE
     Dosage: 12K-38K-60 CAPSULE DR
     Dates: start: 20190220
  18. BUDESONIDE [Concomitant]
     Active Substance: BUDESONIDE
     Dosage: 0.25MG/2ML AMPUL-NEB
     Dates: start: 20190220
  19. FIASP [Concomitant]
     Active Substance: INSULIN ASPART
  20. ADVAIR HFA [Concomitant]
     Active Substance: FLUTICASONE PROPIONATE\SALMETEROL XINAFOATE
     Dosage: 100-50 MCG BLST W/DEV
     Dates: start: 20190220
  21. ASPIRIN [Concomitant]
     Active Substance: ASPIRIN
  22. ALBUTEROL SULFATE [Concomitant]
     Active Substance: ALBUTEROL SULFATE
     Dosage: 0.63MG/3ML VIAL-NEB
     Dates: start: 20190220
  23. MUPIROCIN [Concomitant]
     Active Substance: MUPIROCIN
     Dosage: UNKNOWN
     Dates: start: 20190220
  24. SODIUM CHLORIDE [Concomitant]
     Active Substance: SODIUM CHLORIDE
     Dosage: 0.9 % VIAL
     Dates: start: 20190220
  25. MAXIDEX [Concomitant]
     Active Substance: DEXAMETHASONE
  26. AZITHROMYCIN [Concomitant]
     Active Substance: AZITHROMYCIN
     Dosage: UNKNOWN
     Dates: start: 20190220
  27. ALLEGRA D-12 HOUR [Concomitant]
     Active Substance: FEXOFENADINE HYDROCHLORIDE\PSEUDOEPHEDRINE HYDROCHLORIDE
  28. TARCEVA [Concomitant]
     Active Substance: ERLOTINIB HYDROCHLORIDE
     Dosage: 100MG TABLET
     Dates: start: 20190220
  29. PULMOZYME [Concomitant]
     Active Substance: DORNASE ALFA
     Dosage: 1 MG/ML SOLUTION
     Dates: start: 20190220
  30. MAGNESIUM CITRATE [Concomitant]
     Active Substance: MAGNESIUM CITRATE
     Dosage: 100 MG TABLET
     Dates: start: 20190220
  31. PROAIR HFA [Concomitant]
     Active Substance: ALBUTEROL SULFATE
  32. MUCINEX [Concomitant]
     Active Substance: GUAIFENESIN
     Dosage: 100 MG GRAN PACK
     Dates: start: 20190220
  33. GENTAMICIN [Concomitant]
     Active Substance: GENTAMICIN
     Dosage: -SODIUM CITRATE 320 MCG/ML VIAL
     Dates: start: 20190220

REACTIONS (2)
  - Pseudomonas infection [Unknown]
  - Infection [Unknown]

NARRATIVE: CASE EVENT DATE: 20220301
